FAERS Safety Report 5816897-4 (Version None)
Quarter: 2008Q3

REPORT INFORMATION
  Report Type: 
  Country: None (occurrence: None)
  Receive Date: 20080721
  Receipt Date: 20080711
  Transmission Date: 20090109
  Serious: Yes (Hospitalization, Other)
  Sender: FDA-Public Use
  Company Number: PL-GILEAD-2008-0014773

PATIENT
  Sex: Male

DRUGS (11)
  1. ADEFOVIR DIPIVOXIL KIT [Suspect]
     Indication: HEPATITIS B
     Route: 048
     Dates: start: 20070604
  2. ADEFOVIR DIPIVOXIL KIT [Suspect]
     Indication: HEPATIC CIRRHOSIS
  3. OMEPRAZOLE [Concomitant]
     Dates: start: 20050101
  4. FUROSEMIDE [Concomitant]
     Dates: start: 20050101
  5. LIPANCREA [Concomitant]
     Dates: start: 20050101
  6. LIPANCREA [Concomitant]
     Dates: start: 20071110
  7. AMILORIDE HYDROCHLORIDE [Concomitant]
     Dates: start: 20050101
  8. SIMETHICONE [Concomitant]
     Dates: start: 20080116
  9. CHLORTHALIDONE [Concomitant]
     Dates: start: 20080209
  10. NORFLOXACIN [Concomitant]
     Dates: start: 20080219
  11. URSODIOL [Concomitant]
     Dates: start: 20080212, end: 20080219

REACTIONS (2)
  - ASCITES [None]
  - BLOOD ALBUMIN DECREASED [None]
